FAERS Safety Report 9286351 (Version 3)
Quarter: 2013Q4

REPORT INFORMATION
  Report Type: Spontaneous
  Country: US (occurrence: US)
  Receive Date: 20130513
  Receipt Date: 20131217
  Transmission Date: 20140711
  Serious: Yes (Hospitalization, Other)
  Sender: FDA-Public Use
  Company Number: US-BAYER-2013-057607

PATIENT
  Age: 18 Year
  Sex: Female
  Weight: 79 kg

DRUGS (7)
  1. YAZ [Suspect]
     Indication: PREMENSTRUAL SYNDROME
     Dosage: UNK
     Dates: start: 200709, end: 200804
  2. YAZ [Suspect]
     Indication: ACNE
  3. YASMIN [Suspect]
     Dosage: UNK
  4. ZYRTEC [Concomitant]
  5. NASONEX [Concomitant]
  6. ZOMIG [Concomitant]
  7. ADVIL [Concomitant]
     Indication: PAIN IN EXTREMITY

REACTIONS (11)
  - Deep vein thrombosis [None]
  - Thrombosis [None]
  - Abdominal pain [None]
  - Pain [None]
  - Injury [None]
  - Swelling [None]
  - General physical health deterioration [None]
  - Emotional distress [None]
  - Adjustment disorder [None]
  - Anxiety [None]
  - Pain [None]
